FAERS Safety Report 6572343-7 (Version None)
Quarter: 2010Q1

REPORT INFORMATION
  Report Type: 
  Country: None (occurrence: None)
  Receive Date: 20100205
  Receipt Date: 20100127
  Transmission Date: 20100710
  Serious: Yes (Hospitalization)
  Sender: FDA-Public Use
  Company Number: US-JNJFOC-20100111668

PATIENT
  Sex: Female

DRUGS (8)
  1. REMICADE [Suspect]
     Indication: CROHN'S DISEASE
     Route: 042
  2. FISH OIL [Concomitant]
     Indication: GENERAL PHYSICAL CONDITION
  3. VITAMIN [Concomitant]
     Indication: GENERAL PHYSICAL CONDITION
  4. VITAMIN C [Concomitant]
     Indication: GENERAL PHYSICAL CONDITION
  5. CALCIUM [Concomitant]
     Indication: GENERAL PHYSICAL CONDITION
  6. ALBUTEROL [Concomitant]
     Indication: ASTHMA
     Dosage: 1 PULL EVERY 6 HOURS AS NEEDED
  7. IRON [Concomitant]
     Indication: GENERAL PHYSICAL CONDITION
  8. UNSPECIFIED BIRTH CONTROL [Concomitant]
     Indication: CONTRACEPTION
     Dosage: 1 TAB DAILY

REACTIONS (2)
  - HOSPITALISATION [None]
  - SMALL INTESTINAL OBSTRUCTION [None]
